FAERS Safety Report 12613286 (Version 1)
Quarter: 2016Q3

REPORT INFORMATION
  Report Type: Spontaneous
  Country: US (occurrence: None)
  Receive Date: 20160801
  Receipt Date: 20160801
  Transmission Date: 20161109
  Serious: Yes (Death)
  Sender: FDA-Public Use
  Company Number: None

PATIENT
  Age: 82 Year
  Sex: Male
  Weight: 61.24 kg

DRUGS (2)
  1. EYE DROPS [Suspect]
     Active Substance: TETRAHYDROZOLINE HYDROCHLORIDE
  2. NIVOLUMAB [Suspect]
     Active Substance: NIVOLUMAB
     Indication: MALIGNANT MELANOMA
     Dosage: EVERY TWO WEEKS CHEMOTHERAPY INFUSION
     Dates: start: 20151005, end: 20151019

REACTIONS (3)
  - Liquid product physical issue [None]
  - Product contamination physical [None]
  - Adverse drug reaction [None]

NARRATIVE: CASE EVENT DATE: 20151019
